FAERS Safety Report 24232355 (Version 2)
Quarter: 2024Q3

REPORT INFORMATION
  Report Type: Spontaneous
  Country: CN (occurrence: CN)
  Receive Date: 20240821
  Receipt Date: 20240828
  Transmission Date: 20241016
  Serious: Yes (Other)
  Sender: PFIZER
  Company Number: CN-PFIZER INC-PV202400106718

PATIENT
  Age: 37 Year
  Sex: Female
  Weight: 62.6 kg

DRUGS (6)
  1. EPIRUBICIN [Suspect]
     Active Substance: EPIRUBICIN
     Indication: Breast cancer
     Dosage: 155 MG, 1X/DAY
     Route: 041
     Dates: start: 20240803, end: 20240803
  2. CYCLOPHOSPHAMIDE [Suspect]
     Active Substance: CYCLOPHOSPHAMIDE
     Indication: Breast cancer
     Dosage: 0.95 G, 1X/DAY
     Route: 041
     Dates: start: 20240803, end: 20240803
  3. SODIUM CHLORIDE [Concomitant]
     Active Substance: SODIUM CHLORIDE
     Indication: Chemotherapy
     Dosage: 100 ML, 1X/DAY
     Route: 041
     Dates: start: 20240803, end: 20240803
  4. TROPISETRON [Concomitant]
     Active Substance: TROPISETRON
     Indication: Prophylaxis
     Dosage: 5 ML
  5. DEXAMETHASONE [Concomitant]
     Active Substance: DEXAMETHASONE
     Indication: Prophylaxis
     Dosage: 5 MG
     Route: 040
  6. OMEPRAZOLE SODIUM [Concomitant]
     Active Substance: OMEPRAZOLE SODIUM
     Indication: Prophylaxis
     Dosage: 40 MG

REACTIONS (6)
  - Nausea [Recovering/Resolving]
  - Sleep disorder [Recovering/Resolving]
  - Vomiting [Recovering/Resolving]
  - Hypocalcaemia [Recovering/Resolving]
  - Nail pigmentation [Recovering/Resolving]
  - Decreased appetite [Unknown]

NARRATIVE: CASE EVENT DATE: 20240803
